FAERS Safety Report 5027788-3 (Version None)
Quarter: 2006Q2

REPORT INFORMATION
  Report Type: 
  Country: None (occurrence: None)
  Receive Date: 20060614
  Receipt Date: 20060614
  Transmission Date: 20061013
  Serious: Yes (Other)
  Sender: FDA-Public Use
  Company Number: None

PATIENT
  Age: 54 Year
  Sex: Male
  Weight: 90.7194 kg

DRUGS (1)
  1. LOVASTATIN [Suspect]
     Indication: DYSLIPIDAEMIA
     Dosage: 40MG  PO  QHS
     Route: 048
     Dates: start: 20060228, end: 20060410

REACTIONS (3)
  - BONE PAIN [None]
  - FEELING ABNORMAL [None]
  - REFUSAL OF TREATMENT BY PATIENT [None]
